FAERS Safety Report 18651985 (Version 1)
Quarter: 2020Q4

REPORT INFORMATION
  Report Type: Spontaneous
  Country: JP (occurrence: JP)
  Receive Date: 20201223
  Receipt Date: 20201223
  Transmission Date: 20210114
  Serious: Yes (Disabling)
  Sender: FDA-Public Use
  Company Number: JP-REGENERON PHARMACEUTICALS, INC.-2020-96174

PATIENT

DRUGS (2)
  1. EYLEA [Suspect]
     Active Substance: AFLIBERCEPT
     Indication: DIABETIC RETINAL OEDEMA
     Dosage: 0.05ML,ONCE(BOTH EYES)
     Route: 031
     Dates: start: 202011, end: 202011
  2. EYLEA [Suspect]
     Active Substance: AFLIBERCEPT
     Dosage: 0.05ML,ONCE(BOTH EYES)
     Route: 031
     Dates: start: 202012, end: 202012

REACTIONS (1)
  - Retinal artery occlusion [Recovered/Resolved]

NARRATIVE: CASE EVENT DATE: 202012
